FAERS Safety Report 10270875 (Version 1)
Quarter: 2014Q2

REPORT INFORMATION
  Report Type: Spontaneous
  Country: US (occurrence: None)
  Receive Date: 20140626
  Receipt Date: 20140626
  Transmission Date: 20141212
  Serious: No
  Sender: FDA-Public Use
  Company Number: None

PATIENT
  Age: 64 Year
  Sex: Female

DRUGS (1)
  1. CAPECITABINE [Suspect]
     Indication: BREAST CANCER
     Dosage: 2000MG AM, 1500MG PM, 1 WK ON /1 WK OFF, ORAL
     Route: 048
     Dates: start: 20140410, end: 20140625

REACTIONS (1)
  - Pruritus generalised [None]
